FAERS Safety Report 7707721-3 (Version None)
Quarter: 2011Q3

REPORT INFORMATION
  Report Type: 
  Country: None (occurrence: None)
  Receive Date: 20110824
  Receipt Date: 20110817
  Transmission Date: 20111222
  Serious: Yes (Death, Hospitalization, Other)
  Sender: FDA-Public Use
  Company Number: US-AMGEN-USASP2011036686

PATIENT
  Age: 68 Year
  Sex: Female

DRUGS (7)
  1. DECADRON [Concomitant]
     Dosage: UNK
     Dates: start: 20110228, end: 20110301
  2. PROTONIX [Concomitant]
     Dosage: UNK
     Dates: start: 20110228, end: 20110301
  3. CYCLOSPORINE [Concomitant]
     Dosage: UNK
     Dates: start: 20110228, end: 20110301
  4. LASIX [Concomitant]
     Dosage: UNK
     Dates: start: 20110228, end: 20110301
  5. AVELOX [Concomitant]
     Dosage: UNK
     Dates: start: 20110228, end: 20110301
  6. NPLATE [Suspect]
     Indication: IDIOPATHIC THROMBOCYTOPENIC PURPURA
     Dosage: 67 A?G, QWK
     Route: 058
     Dates: start: 20110216, end: 20110223
  7. LANTUS [Concomitant]
     Dosage: UNK
     Dates: start: 20110228, end: 20110301

REACTIONS (5)
  - THERAPEUTIC RESPONSE UNEXPECTED [None]
  - CARDIAC FAILURE CONGESTIVE [None]
  - DEEP VEIN THROMBOSIS [None]
  - SEPSIS [None]
  - APLASTIC ANAEMIA [None]
